FAERS Safety Report 6907189-0 (Version None)
Quarter: 2010Q3

REPORT INFORMATION
  Report Type: 
  Country: None (occurrence: None)
  Receive Date: 20100802
  Receipt Date: 20100719
  Transmission Date: 20110219
  Serious: Yes (Hospitalization)
  Sender: FDA-Public Use
  Company Number: 1000015323

PATIENT
  Age: 89 Year
  Sex: Female

DRUGS (7)
  1. ESCITALOPRAM [Suspect]
     Dosage: 20 MG (20 MG,1 IN 1 D),ORAL
     Route: 048
     Dates: start: 20100503, end: 20100628
  2. LASIX [Suspect]
     Dosage: 20 MG (20 MG,1 IN 1 D),ORAL
     Route: 048
     Dates: end: 20100628
  3. EQUANIL [Concomitant]
  4. ATACAND [Concomitant]
  5. KARDEGIC [Concomitant]
  6. NEXIUM [Concomitant]
  7. CORDARONE [Concomitant]

REACTIONS (6)
  - BLOOD OSMOLARITY DECREASED [None]
  - DECREASED APPETITE [None]
  - FALL [None]
  - GENERAL PHYSICAL HEALTH DETERIORATION [None]
  - HYPONATRAEMIA [None]
  - PSYCHOMOTOR RETARDATION [None]
